FAERS Safety Report 23118337 (Version 2)
Quarter: 2023Q4

REPORT INFORMATION
  Report Type: Report from Study
  Country: US (occurrence: US)
  Receive Date: 20231028
  Receipt Date: 20231030
  Transmission Date: 20240110
  Serious: Yes (Other)
  Sender: FDA-Public Use
  Company Number: US-ABBVIE-5410469

PATIENT
  Age: 68 Year
  Sex: Male
  Weight: 83.461 kg

DRUGS (26)
  1. HUMIRA [Suspect]
     Active Substance: ADALIMUMAB
     Indication: Psoriatic arthropathy
     Route: 058
     Dates: start: 2013, end: 202212
  2. ASPIRIN [Concomitant]
     Active Substance: ASPIRIN
     Indication: Product used for unknown indication
     Dosage: 81 MG
     Route: 048
     Dates: start: 20230421
  3. ALBUTEROL SULFATE [Concomitant]
     Active Substance: ALBUTEROL SULFATE
     Indication: Product used for unknown indication
     Dosage: TIME INTERVAL: 0.33333333 DAYS: 2.5 MG/3 ML (0.083 %)  SOLUTION FOR NEBULIZATION INHALE 3 ML
     Route: 055
     Dates: start: 20221228
  4. DEXTROAMPHETAMINE [Concomitant]
     Active Substance: DEXTROAMPHETAMINE
     Indication: Product used for unknown indication
     Dosage: 30 MG IN THE MORNING FOR 30 DAYS.
     Route: 048
     Dates: start: 20230922
  5. ELIQUIS [Concomitant]
     Active Substance: APIXABAN
     Indication: Product used for unknown indication
     Dosage: 5MG
     Route: 048
     Dates: start: 20230912
  6. FAMOTIDINE [Concomitant]
     Active Substance: FAMOTIDINE
     Indication: Product used for unknown indication
     Dosage: 40MG
     Dates: start: 20230322
  7. FOLIC ACID [Concomitant]
     Active Substance: FOLIC ACID
     Indication: Product used for unknown indication
     Dosage: 1MG
     Route: 048
     Dates: start: 20230605
  8. FUROSEMIDE [Concomitant]
     Active Substance: FUROSEMIDE
     Indication: Product used for unknown indication
     Dosage: 20 MG
     Route: 048
     Dates: start: 20230912
  9. JARDIANCE [Concomitant]
     Active Substance: EMPAGLIFLOZIN
     Indication: Product used for unknown indication
     Dosage: 25MG IN THE MORNING FOR 90 DAYS.
     Route: 048
  10. LORATADINE [Concomitant]
     Active Substance: LORATADINE
     Indication: Product used for unknown indication
     Dosage: 10 MG
     Route: 048
     Dates: start: 20230605
  11. METHOTREXATE SODIUM [Concomitant]
     Active Substance: METHOTREXATE SODIUM
     Indication: Product used for unknown indication
     Dosage: 2.5 MG  AS DIRECTED FOR 28 DAYS.
     Route: 048
  12. METHOTREXATE SODIUM [Concomitant]
     Active Substance: METHOTREXATE SODIUM
     Indication: Product used for unknown indication
     Dosage: 7.5 MG FOR 28 DAY
     Route: 048
     Dates: start: 20230809
  13. NITROGLYCERIN [Concomitant]
     Active Substance: NITROGLYCERIN
     Indication: Product used for unknown indication
     Dosage: 0.4 MG 1 OR 2 PACKETS PLACED UNDER THE TONGUE AT THE FIRST SIGN OF AN ANGINA ATTACK. 1 PACKET MAY...
     Dates: start: 20230706
  14. NOVOLOG [Concomitant]
     Active Substance: INSULIN ASPART
     Indication: Product used for unknown indication
     Dosage: U-100 INSULIN ASPART 100 UNIT/ML. 71-149 NO INSULIN, 150-180 2 UNITS, 181-210 4 UNITS, 211-240 6 ...
     Route: 058
     Dates: start: 20221021
  15. OMEPRAZOLE [Concomitant]
     Active Substance: OMEPRAZOLE
     Indication: Product used for unknown indication
     Dosage: 40 MG , DELAYED RELEASE
     Dates: start: 20230825
  16. PAROXETINE [Concomitant]
     Active Substance: PAROXETINE
     Indication: Product used for unknown indication
     Dosage: 30 MG
     Route: 048
     Dates: start: 20230410
  17. TADALAFIL [Concomitant]
     Active Substance: TADALAFIL
     Indication: Product used for unknown indication
     Route: 048
     Dates: start: 20230825
  18. TAMSULOSIN [Concomitant]
     Active Substance: TAMSULOSIN
     Indication: Product used for unknown indication
  19. TESTOSTERONE CYPIONATE [Concomitant]
     Active Substance: TESTOSTERONE CYPIONATE
     Indication: Product used for unknown indication
  20. TRAZODONE [Concomitant]
     Active Substance: TRAZODONE HYDROCHLORIDE
     Indication: Product used for unknown indication
  21. MODERNA COVID-19 VACCINE [Concomitant]
     Active Substance: ELASOMERAN
     Indication: COVID-19 immunisation
     Dosage: 0.5ML
     Route: 030
     Dates: start: 20210306, end: 20210306
  22. MODERNA COVID-19 VACCINE [Concomitant]
     Active Substance: ELASOMERAN
     Indication: COVID-19 immunisation
     Route: 030
     Dates: start: 20210403, end: 20210403
  23. TETANUS TOXOID, REDUCED DIPHTHERIA TOXOID AND ACELLULAR PERTUSSIS VACC [Concomitant]
     Active Substance: TETANUS TOXOID, REDUCED DIPHTHERIA TOXOID AND ACELLULAR PERTUSSIS VACCINE ADSORBED, TDAP
     Indication: Product used for unknown indication
     Dates: start: 20141030
  24. Td adult [Concomitant]
     Indication: Product used for unknown indication
     Dates: start: 20201019
  25. PREDNISONE [Concomitant]
     Active Substance: PREDNISONE
     Indication: Product used for unknown indication
     Dosage: TIME INTERVAL: 0.33333333 DAYS: 20 MG
     Route: 048
  26. ROSUVASTATIN [Concomitant]
     Active Substance: ROSUVASTATIN
     Indication: Product used for unknown indication
     Dosage: 20 MG
     Route: 048

REACTIONS (28)
  - Cataract [Unknown]
  - Essential hypertension [Unknown]
  - Back pain [Recovered/Resolved]
  - Arthralgia [Unknown]
  - Psoriasis [Recovering/Resolving]
  - Joint swelling [Unknown]
  - Bowen^s disease [Unknown]
  - Hypogonadism male [Unknown]
  - Generalised anxiety disorder [Unknown]
  - Insomnia [Unknown]
  - Vitreous detachment [Unknown]
  - Hypercoagulation [Unknown]
  - Immunodeficiency [Unknown]
  - Hypertension [Unknown]
  - Attention deficit hyperactivity disorder [Unknown]
  - Type V hyperlipidaemia [Unknown]
  - Arthritis [Unknown]
  - Pseudophakia [Unknown]
  - Bronchial hyperreactivity [Unknown]
  - Cardiac failure [Unknown]
  - Diabetes mellitus [Unknown]
  - Benign prostatic hyperplasia [Unknown]
  - Gastrooesophageal reflux disease [Unknown]
  - Dependence [Unknown]
  - Type 2 diabetes mellitus [Unknown]
  - Hyperlipidaemia [Unknown]
  - Dry eye [Unknown]
  - Ocular surface squamous neoplasia [Unknown]

NARRATIVE: CASE EVENT DATE: 20190208
